FAERS Safety Report 17827732 (Version 1)
Quarter: 2020Q2

REPORT INFORMATION
  Report Type: Spontaneous
  Country: US (occurrence: US)
  Receive Date: 20200526
  Receipt Date: 20200526
  Transmission Date: 20200714
  Serious: Yes (Other)
  Sender: FDA-Public Use
  Company Number: None

PATIENT
  Age: 36 Year
  Sex: Female

DRUGS (11)
  1. OMEPRAZOLE 20MG PO Q 1700 [Concomitant]
  2. CEPACHOL THROAT LOZENGE PRN [Concomitant]
  3. LITHIUM. [Suspect]
     Active Substance: LITHIUM
     Route: 048
  4. METFORMIN 500MG QAM MEAL [Concomitant]
  5. MELATONIN 10MG PO QHS [Concomitant]
  6. LORATIDINE 10MG PO QHS [Concomitant]
  7. PROPRANOLOL 20MG PO BID [Concomitant]
  8. OLANZAPINE. [Suspect]
     Active Substance: OLANZAPINE
     Route: 048
  9. LACTOBACILLUS 1 CAP PO BID [Concomitant]
  10. IRON SULFATE 325MG QAM [Concomitant]
  11. RISPERIDONE CONSTA 50MG Q 2 WEEKS [Concomitant]

REACTIONS (6)
  - Bundle branch block [None]
  - Mood altered [None]
  - Irritability [None]
  - Electrocardiogram QT prolonged [None]
  - Electrocardiogram QRS complex prolonged [None]
  - Tachycardia [None]

NARRATIVE: CASE EVENT DATE: 20200309
